FAERS Safety Report 15845629 (Version 2)
Quarter: 2019Q1

REPORT INFORMATION
  Report Type: Report from Study
  Country: EG (occurrence: EG)
  Receive Date: 20190119
  Receipt Date: 20190124
  Transmission Date: 20190417
  Serious: Yes (Other)
  Sender: FDA-Public Use
  Company Number: PHHY2019EG009565

PATIENT
  Age: 64 Year
  Sex: Female

DRUGS (5)
  1. FEMARA [Suspect]
     Active Substance: LETROZOLE
     Indication: LUNG NEOPLASM MALIGNANT
  2. AFINITOR [Suspect]
     Active Substance: EVEROLIMUS
     Indication: BREAST CANCER
     Dosage: 10 MG, QD
     Route: 048
     Dates: start: 201804, end: 201810
  3. AFINITOR [Suspect]
     Active Substance: EVEROLIMUS
     Indication: LUNG NEOPLASM MALIGNANT
  4. FASLODEX [Concomitant]
     Active Substance: FULVESTRANT
     Indication: PRODUCT USED FOR UNKNOWN INDICATION
     Dosage: UNK (EVERY 15 DAYS THE PATIENT TOOK ONE INJECTION + THEN ONCE MONTHLY)
     Route: 065
     Dates: start: 201801, end: 201804
  5. FEMARA [Suspect]
     Active Substance: LETROZOLE
     Indication: BREAST CANCER
     Dosage: 10 MG, QD
     Route: 048
     Dates: start: 201401, end: 201801

REACTIONS (16)
  - Stomatitis [Recovered/Resolved]
  - Hypotonic urinary bladder [Recovering/Resolving]
  - Pulmonary oedema [Recovering/Resolving]
  - Micturition urgency [Recovering/Resolving]
  - Dyspnoea [Recovering/Resolving]
  - Lymphatic obstruction [Recovering/Resolving]
  - Lung infiltration [Recovering/Resolving]
  - Neoplasm progression [Unknown]
  - Insomnia [Recovering/Resolving]
  - Peripheral swelling [Recovering/Resolving]
  - Productive cough [Recovering/Resolving]
  - Tumour marker increased [Not Recovered/Not Resolved]
  - Fatigue [Recovering/Resolving]
  - Renal impairment [Recovering/Resolving]
  - Haemorrhoids [Recovering/Resolving]
  - Ocular hyperaemia [Recovering/Resolving]

NARRATIVE: CASE EVENT DATE: 2017
